FAERS Safety Report 15825523 (Version 2)
Quarter: 2019Q1

REPORT INFORMATION
  Report Type: Spontaneous
  Country: JP (occurrence: JP)
  Receive Date: 20190115
  Receipt Date: 20190117
  Transmission Date: 20190417
  Serious: Yes (Life-Threatening, Disabling, Other)
  Sender: FDA-Public Use
  Company Number: JP-BAYER-2019-007728

PATIENT
  Age: 63 Year
  Sex: Female

DRUGS (2)
  1. BAYASPIRIN 100 MG [Suspect]
     Active Substance: ASPIRIN
  2. WARFARIN POTASSIUM [Interacting]
     Active Substance: WARFARIN POTASSIUM

REACTIONS (3)
  - Basal ganglia haemorrhage [Recovered/Resolved with Sequelae]
  - Labelled drug-drug interaction medication error [None]
  - Hemiplegia [None]
